FAERS Safety Report 8843250 (Version 1)
Quarter: 2012Q4

REPORT INFORMATION
  Report Type: 
  Country: US (occurrence: US)
  Receive Date: 20121016
  Receipt Date: 20121016
  Transmission Date: 20130627
  Serious: Yes (Other)
  Sender: FDA-Public Use
  Company Number: PHHY2012US088616

PATIENT
  Age: 59 Year
  Sex: Female

DRUGS (1)
  1. ALENDRONIC ACID [Suspect]

REACTIONS (3)
  - Femur fracture [Recovered/Resolved]
  - Bone pain [Recovered/Resolved]
  - Fall [Recovered/Resolved]
